FAERS Safety Report 9339606 (Version 1)
Quarter: 2013Q2

REPORT INFORMATION
  Report Type: Spontaneous
  Country: US (occurrence: US)
  Receive Date: 20130610
  Receipt Date: 20130610
  Transmission Date: 20140414
  Serious: No
  Sender: FDA-Public Use
  Company Number: US-BIOGENIDEC-2013BI047417

PATIENT
  Age: 51 Year
  Sex: Female

DRUGS (6)
  1. AVONEX [Suspect]
     Indication: MULTIPLE SCLEROSIS
     Route: 030
     Dates: start: 20130508
  2. BACLOFEN [Concomitant]
     Indication: MUSCLE SPASMS
  3. BACLOFEN [Concomitant]
     Indication: PAIN
  4. BACLOFEN [Concomitant]
     Indication: MUSCULOSKELETAL STIFFNESS
  5. IBUPROFEN [Concomitant]
     Indication: PAIN
     Dates: start: 20130522
  6. IBUPROFEN [Concomitant]
     Indication: HEADACHE
     Dates: start: 20130522

REACTIONS (2)
  - Sensation of pressure [Not Recovered/Not Resolved]
  - Swelling face [Not Recovered/Not Resolved]
